FAERS Safety Report 5263755-2 (Version None)
Quarter: 2007Q1

REPORT INFORMATION
  Report Type: 
  Country: None (occurrence: None)
  Receive Date: 20061213
  Receipt Date: 20060426
  Transmission Date: 20070707
  Serious: Yes (Other)
  Sender: FDA-Public Use
  Company Number: 2004UW07521

PATIENT
  Age: 50 Year
  Sex: Female
  Weight: 108.86 kg

DRUGS (2)
  1. IRESSA [Suspect]
     Indication: NON-SMALL CELL LUNG CANCER
     Dates: start: 20030101
  2. IRESSA [Suspect]
     Indication: NON-SMALL CELL LUNG CANCER

REACTIONS (5)
  - COUGH [None]
  - DYSPNOEA [None]
  - HEADACHE [None]
  - LUNG DISORDER [None]
  - METASTASES TO CENTRAL NERVOUS SYSTEM [None]
